FAERS Safety Report 4756682-8 (Version None)
Quarter: 2005Q3

REPORT INFORMATION
  Report Type: 
  Country: None (occurrence: None)
  Receive Date: 20050830
  Receipt Date: 20050824
  Transmission Date: 20060218
  Serious: Yes (Death)
  Sender: FDA-Public Use
  Company Number: 2005JP001633

PATIENT

DRUGS (3)
  1. CEFAZOLIN [Suspect]
     Indication: INFECTION PROPHYLAXIS
  2. FLOMOXEF [Suspect]
     Indication: INFECTION PROPHYLAXIS
  3. AMPICILLIN [Suspect]
     Indication: INFECTION PROPHYLAXIS

REACTIONS (17)
  - ACIDOSIS [None]
  - ANAEMIA [None]
  - APGAR SCORE LOW [None]
  - ASPHYXIA [None]
  - BLOOD PRESSURE SYSTOLIC DECREASED [None]
  - CAESAREAN SECTION [None]
  - CARDIAC ARREST [None]
  - CONDITION AGGRAVATED [None]
  - DRUG EXPOSURE DURING PREGNANCY [None]
  - FOETAL DISTRESS SYNDROME [None]
  - HYPOXIA [None]
  - NEONATAL DISORDER [None]
  - PERSISTENT FOETAL CIRCULATION [None]
  - PSEUDOMONAL SEPSIS [None]
  - RASH ERYTHEMATOUS [None]
  - SEPSIS [None]
  - THROMBOCYTOPENIA [None]
